FAERS Safety Report 18455040 (Version 2)
Quarter: 2021Q3

REPORT INFORMATION
  Report Type: Report from Study
  Country: FR (occurrence: FR)
  Receive Date: 20201102
  Receipt Date: 20210721
  Transmission Date: 20211014
  Serious: Yes (Hospitalization, Other)
  Sender: FDA-Public Use
  Company Number: FR-TAKEDA-FR202031447

PATIENT
  Age: 36 Year
  Sex: Female

DRUGS (57)
  1. TEDUGLUTIDE [Suspect]
     Active Substance: TEDUGLUTIDE
     Dosage: 2.2 MILLIGRAM (DAILY DOSE 0.05 MG/KG), OTHER (TED DOSES PER WEEK 7)
     Route: 065
     Dates: start: 20160907, end: 20161109
  2. TEDUGLUTIDE [Suspect]
     Active Substance: TEDUGLUTIDE
     Dosage: 1.95 MILLIGRAM (DAILY DOSE 0.05 MG/KG), OTHER (TED DOSES PER WEEK 7)
     Route: 065
     Dates: start: 20170512, end: 20170619
  3. TEDUGLUTIDE [Suspect]
     Active Substance: TEDUGLUTIDE
     Dosage: 2 MILLIGRAM (DAILY DOSE 0.05 MG/KG), OTHER (TED DOSES PER WEEK 7)
     Route: 065
     Dates: start: 20170627, end: 20170822
  4. TEDUGLUTIDE [Suspect]
     Active Substance: TEDUGLUTIDE
     Dosage: 2 MILLIGRAM (DAILY DOSE 0.05 MG/KG), OTHER (TED DOSES PER WEEK 7)
     Route: 065
     Dates: start: 20170918, end: 20171013
  5. TEDUGLUTIDE [Suspect]
     Active Substance: TEDUGLUTIDE
     Dosage: 2 MILLIGRAM (DAILY DOSE 0.05 MG/KG), OTHER (TED DOSES PER WEEK 7)
     Route: 065
     Dates: start: 20170918, end: 20171013
  6. TEDUGLUTIDE [Suspect]
     Active Substance: TEDUGLUTIDE
     Indication: SHORT-BOWEL SYNDROME
     Dosage: 2.6 MILLIGRAM (DAILY DOSE 0.05 MG/KG), OTHER (TED DOSES PER WEEK 7)
     Route: 065
     Dates: start: 20160316, end: 20160516
  7. TEDUGLUTIDE [Suspect]
     Active Substance: TEDUGLUTIDE
     Dosage: 2.6 MILLIGRAM (DAILY DOSE 0.05 MG/KG), OTHER (TED DOSES PER WEEK 7)
     Route: 065
     Dates: start: 20160617, end: 20160816
  8. TEDUGLUTIDE [Suspect]
     Active Substance: TEDUGLUTIDE
     Dosage: 1.95 MILLIGRAM (DAILY DOSE 0.05 MG/KG), OTHER (TED DOSES PER WEEK 7)
     Route: 065
     Dates: start: 20170512, end: 20170619
  9. ONDANSETRON [Concomitant]
     Active Substance: ONDANSETRON
     Indication: PROPHYLAXIS OF NAUSEA AND VOMITING
     Dosage: 4 MILLIGRAM, BID
     Route: 048
     Dates: start: 20200507
  10. TEDUGLUTIDE [Suspect]
     Active Substance: TEDUGLUTIDE
     Indication: SHORT-BOWEL SYNDROME
     Dosage: 2.6 MILLIGRAM (DAILY DOSE 0.05 MG/KG), OTHER (TED DOSES PER WEEK 7)
     Route: 065
     Dates: start: 20160316, end: 20160516
  11. TEDUGLUTIDE [Suspect]
     Active Substance: TEDUGLUTIDE
     Dosage: 2.6 MILLIGRAM (DAILY DOSE 0.05 MG/KG), OTHER (TED DOSES PER WEEK 7)
     Route: 065
     Dates: start: 20160617, end: 20160816
  12. TEDUGLUTIDE [Suspect]
     Active Substance: TEDUGLUTIDE
     Dosage: 2.6 MILLIGRAM (DAILY DOSE 0.05 MG/KG), OTHER (TED DOSES PER WEEK 7)
     Route: 065
     Dates: start: 20160617, end: 20160816
  13. TEDUGLUTIDE [Suspect]
     Active Substance: TEDUGLUTIDE
     Dosage: 2.4 MILLIGRAM (DAILY DOSE 0.05 MG/KG), OTHER (TED DOSES PER WEEK 7)
     Route: 065
     Dates: start: 20160817, end: 20160906
  14. TEDUGLUTIDE [Suspect]
     Active Substance: TEDUGLUTIDE
     Dosage: 2.2 MILLIGRAM (DAILY DOSE 0.05 MG/KG), OTHER (TED DOSES PER WEEK 7)
     Route: 065
     Dates: start: 20160907, end: 20161109
  15. TEDUGLUTIDE [Suspect]
     Active Substance: TEDUGLUTIDE
     Dosage: 2.2 MILLIGRAM (DAILY DOSE 0.05 MG/KG), OTHER (TED DOSES PER WEEK 7)
     Route: 065
     Dates: start: 20181105, end: 20190822
  16. MORPHINE [Concomitant]
     Active Substance: MORPHINE
     Indication: PAIN
     Dosage: UNK
     Route: 065
  17. TEDUGLUTIDE [Suspect]
     Active Substance: TEDUGLUTIDE
     Indication: SHORT-BOWEL SYNDROME
     Dosage: 2.6 MILLIGRAM (DAILY DOSE 0.05 MG/KG), OTHER (TED DOSES PER WEEK 7)
     Route: 065
     Dates: start: 20160316, end: 20160516
  18. TEDUGLUTIDE [Suspect]
     Active Substance: TEDUGLUTIDE
     Dosage: 2.4 MILLIGRAM (DAILY DOSE 0.05 MG/KG), OTHER (TED DOSES PER WEEK 7)
     Route: 065
     Dates: start: 20160517, end: 20160616
  19. TEDUGLUTIDE [Suspect]
     Active Substance: TEDUGLUTIDE
     Dosage: 2.27 MILLIGRAM (DAILY DOSE 0.05 MG/KG), OTHER (TED DOSES PER WEEK 7)
     Route: 065
     Dates: start: 20170321, end: 20170512
  20. TEDUGLUTIDE [Suspect]
     Active Substance: TEDUGLUTIDE
     Dosage: 1.95 MILLIGRAM (DAILY DOSE 0.05 MG/KG), OTHER (TED DOSES PER WEEK 7)
     Route: 065
     Dates: start: 20170512, end: 20170619
  21. TEDUGLUTIDE [Suspect]
     Active Substance: TEDUGLUTIDE
     Dosage: 2 MILLIGRAM (DAILY DOSE 0.05 MG/KG), OTHER (TED DOSES PER WEEK 7)
     Route: 065
     Dates: start: 20170627, end: 20170822
  22. TEDUGLUTIDE [Suspect]
     Active Substance: TEDUGLUTIDE
     Dosage: 2 MILLIGRAM (DAILY DOSE 0.05 MG/KG), OTHER (TED DOSES PER WEEK 7)
     Route: 065
     Dates: start: 20170918, end: 20171013
  23. TEDUGLUTIDE [Suspect]
     Active Substance: TEDUGLUTIDE
     Dosage: 1 MILLIGRAM (DAILY DOSE 0.02 MG/KG), OTHER (TED DOSES PER WEEK 7)
     Route: 065
     Dates: start: 20171014, end: 201711
  24. ACUPAN [Concomitant]
     Active Substance: NEFOPAM HYDROCHLORIDE
     Indication: PAIN
     Dosage: UNK
     Route: 065
  25. TEDUGLUTIDE [Suspect]
     Active Substance: TEDUGLUTIDE
     Indication: SHORT-BOWEL SYNDROME
     Dosage: 2.6 MILLIGRAM (DAILY DOSE 0.05 MG/KG), OTHER (TED DOSES PER WEEK 7)
     Route: 065
     Dates: start: 20160316, end: 20160516
  26. TEDUGLUTIDE [Suspect]
     Active Substance: TEDUGLUTIDE
     Dosage: 2.4 MILLIGRAM (DAILY DOSE 0.05 MG/KG), OTHER (TED DOSES PER WEEK 7)
     Route: 065
     Dates: start: 20160517, end: 20160616
  27. TEDUGLUTIDE [Suspect]
     Active Substance: TEDUGLUTIDE
     Dosage: 2.6 MILLIGRAM (DAILY DOSE 0.05 MG/KG), OTHER (TED DOSES PER WEEK 7)
     Route: 065
     Dates: start: 20160617, end: 20160816
  28. TEDUGLUTIDE [Suspect]
     Active Substance: TEDUGLUTIDE
     Dosage: 2.3 MILLIGRAM (DAILY DOSE 0.05 MG/KG), OTHER (TED DOSES PER WEEK 7)
     Route: 065
     Dates: start: 20161110, end: 20170321
  29. TEDUGLUTIDE [Suspect]
     Active Substance: TEDUGLUTIDE
     Dosage: 2.27 MILLIGRAM (DAILY DOSE 0.05 MG/KG), OTHER (TED DOSES PER WEEK 7)
     Route: 065
     Dates: start: 20170321, end: 20170512
  30. TEDUGLUTIDE [Suspect]
     Active Substance: TEDUGLUTIDE
     Dosage: 1.95 MILLIGRAM (DAILY DOSE 0.05 MG/KG), OTHER (TED DOSES PER WEEK 7)
     Route: 065
     Dates: start: 20170512, end: 20170619
  31. TEDUGLUTIDE [Suspect]
     Active Substance: TEDUGLUTIDE
     Dosage: 2 MILLIGRAM (DAILY DOSE 0.05 MG/KG), OTHER (TED DOSES PER WEEK 7)
     Route: 065
     Dates: start: 20170627, end: 20170822
  32. TEDUGLUTIDE [Suspect]
     Active Substance: TEDUGLUTIDE
     Dosage: 1 MILLIGRAM (DAILY DOSE 0.02 MG/KG), OTHER (TED DOSES PER WEEK 7)
     Route: 065
     Dates: start: 20171014, end: 201711
  33. TEDUGLUTIDE [Suspect]
     Active Substance: TEDUGLUTIDE
     Dosage: 2.2 MILLIGRAM (DAILY DOSE 0.05 MG/KG), OTHER (TED DOSES PER WEEK 7)
     Route: 065
     Dates: start: 20181105, end: 20190822
  34. TAZOCILLINE [Concomitant]
     Active Substance: PIPERACILLIN SODIUM\TAZOBACTAM SODIUM
     Indication: LICE INFESTATION
     Dosage: UNK
     Route: 065
     Dates: start: 202002, end: 202003
  35. PANTOPRAZOLE [Concomitant]
     Active Substance: PANTOPRAZOLE
     Indication: SHORT-BOWEL SYNDROME
  36. TEDUGLUTIDE [Suspect]
     Active Substance: TEDUGLUTIDE
     Dosage: 2.4 MILLIGRAM (DAILY DOSE 0.05 MG/KG), OTHER (TED DOSES PER WEEK 7)
     Route: 065
     Dates: start: 20160517, end: 20160616
  37. TEDUGLUTIDE [Suspect]
     Active Substance: TEDUGLUTIDE
     Dosage: 2.4 MILLIGRAM (DAILY DOSE 0.05 MG/KG), OTHER (TED DOSES PER WEEK 7)
     Route: 065
     Dates: start: 20160817, end: 20160906
  38. TEDUGLUTIDE [Suspect]
     Active Substance: TEDUGLUTIDE
     Dosage: 2.4 MILLIGRAM (DAILY DOSE 0.05 MG/KG), OTHER (TED DOSES PER WEEK 7)
     Route: 065
     Dates: start: 20160817, end: 20160906
  39. TEDUGLUTIDE [Suspect]
     Active Substance: TEDUGLUTIDE
     Dosage: 2.27 MILLIGRAM (DAILY DOSE 0.05 MG/KG), OTHER (TED DOSES PER WEEK 7)
     Route: 065
     Dates: start: 20170321, end: 20170512
  40. TEDUGLUTIDE [Suspect]
     Active Substance: TEDUGLUTIDE
     Dosage: 2 MILLIGRAM (DAILY DOSE 0.05 MG/KG), OTHER (TED DOSES PER WEEK 7)
     Route: 065
     Dates: start: 20170627, end: 20170822
  41. TEDUGLUTIDE [Suspect]
     Active Substance: TEDUGLUTIDE
     Dosage: 1 MILLIGRAM (DAILY DOSE 0.02 MG/KG), OTHER (TED DOSES PER WEEK 7)
     Route: 065
     Dates: start: 20171014, end: 201711
  42. VITAMIN A [Concomitant]
     Active Substance: VITAMIN A
     Indication: VITAMIN A DEFICIENCY
     Dosage: 1 UNK
     Route: 065
  43. TEDUGLUTIDE [Suspect]
     Active Substance: TEDUGLUTIDE
     Dosage: 2.4 MILLIGRAM (DAILY DOSE 0.05 MG/KG), OTHER (TED DOSES PER WEEK 7)
     Route: 065
     Dates: start: 20160817, end: 20160906
  44. TEDUGLUTIDE [Suspect]
     Active Substance: TEDUGLUTIDE
     Dosage: 2.3 MILLIGRAM (DAILY DOSE 0.05 MG/KG), OTHER (TED DOSES PER WEEK 7)
     Route: 065
     Dates: start: 20161110, end: 20170321
  45. TEDUGLUTIDE [Suspect]
     Active Substance: TEDUGLUTIDE
     Dosage: 2.3 MILLIGRAM (DAILY DOSE 0.05 MG/KG), OTHER (TED DOSES PER WEEK 7)
     Route: 065
     Dates: start: 20161110, end: 20170321
  46. TEDUGLUTIDE [Suspect]
     Active Substance: TEDUGLUTIDE
     Dosage: 2.27 MILLIGRAM (DAILY DOSE 0.05 MG/KG), OTHER (TED DOSES PER WEEK 7)
     Route: 065
     Dates: start: 20170321, end: 20170512
  47. PANTOPRAZOLE [Concomitant]
     Active Substance: PANTOPRAZOLE
     Indication: PROPHYLAXIS
     Dosage: 1 UNK
     Route: 065
  48. TEDUGLUTIDE [Suspect]
     Active Substance: TEDUGLUTIDE
     Dosage: 2.4 MILLIGRAM (DAILY DOSE 0.05 MG/KG), OTHER (TED DOSES PER WEEK 7)
     Route: 065
     Dates: start: 20160517, end: 20160616
  49. TEDUGLUTIDE [Suspect]
     Active Substance: TEDUGLUTIDE
     Dosage: 2.2 MILLIGRAM (DAILY DOSE 0.05 MG/KG), OTHER (TED DOSES PER WEEK 7)
     Route: 065
     Dates: start: 20160907, end: 20161109
  50. TEDUGLUTIDE [Suspect]
     Active Substance: TEDUGLUTIDE
     Dosage: 2.2 MILLIGRAM (DAILY DOSE 0.05 MG/KG), OTHER (TED DOSES PER WEEK 7)
     Route: 065
     Dates: start: 20160907, end: 20161109
  51. TEDUGLUTIDE [Suspect]
     Active Substance: TEDUGLUTIDE
     Dosage: 2.3 MILLIGRAM (DAILY DOSE 0.05 MG/KG), OTHER (TED DOSES PER WEEK 7)
     Route: 065
     Dates: start: 20161110, end: 20170321
  52. TEDUGLUTIDE [Suspect]
     Active Substance: TEDUGLUTIDE
     Dosage: 2 MILLIGRAM (DAILY DOSE 0.05 MG/KG), OTHER (TED DOSES PER WEEK 7)
     Route: 065
     Dates: start: 20170918, end: 20171013
  53. TEDUGLUTIDE [Suspect]
     Active Substance: TEDUGLUTIDE
     Dosage: 1 MILLIGRAM (DAILY DOSE 0.02 MG/KG), OTHER (TED DOSES PER WEEK 7)
     Route: 065
     Dates: start: 20171014, end: 201711
  54. TEDUGLUTIDE [Suspect]
     Active Substance: TEDUGLUTIDE
     Dosage: 2.2 MILLIGRAM (DAILY DOSE 0.05 MG/KG), OTHER (TED DOSES PER WEEK 7)
     Route: 065
     Dates: start: 20181105, end: 20190822
  55. TEDUGLUTIDE [Suspect]
     Active Substance: TEDUGLUTIDE
     Dosage: 2.2 MILLIGRAM (DAILY DOSE 0.05 MG/KG), OTHER (TED DOSES PER WEEK 7)
     Route: 065
     Dates: start: 20181105, end: 20190822
  56. DAPTOMYCINE [Concomitant]
     Active Substance: DAPTOMYCIN
     Indication: LICE INFESTATION
     Dosage: UNK
     Route: 065
     Dates: start: 202002, end: 202003
  57. HYDROCORTISONE. [Concomitant]
     Active Substance: HYDROCORTISONE
     Indication: ADRENAL INSUFFICIENCY
     Dosage: 10 MILLIGRAM, QD
     Route: 048

REACTIONS (2)
  - Pancreatitis acute [Recovered/Resolved]
  - Anaemia [Recovered/Resolved]

NARRATIVE: CASE EVENT DATE: 20200907
